FAERS Safety Report 7472233-1 (Version None)
Quarter: 2011Q2

REPORT INFORMATION
  Report Type: 
  Country: None (occurrence: None)
  Receive Date: 20110502
  Receipt Date: 20110418
  Transmission Date: 20111010
  Serious: Yes (Hospitalization)
  Sender: FDA-Public Use
  Company Number: JP-005201

PATIENT
  Sex: Female
  Weight: 61.5 kg

DRUGS (5)
  1. ADALAT [Suspect]
     Indication: HYPERTENSION
     Dosage: (40 MG QD ORAL)
     Route: 048
     Dates: start: 20090101
  2. BLOPRESS (BLOPRESS) 2 MG (NOT SPECIFIED) [Suspect]
     Indication: HYPERTENSION
     Dosage: (2 MG QD ORAL)
     Route: 048
     Dates: start: 20100101
  3. DEGARELIX (DEGARELIX) 240 MG [Suspect]
     Indication: PROSTATE CANCER
     Dosage: (240 MG TOTAL SUBCUTANEOUS)
     Route: 058
     Dates: start: 20110331, end: 20110331
  4. ALLOPURINOL [Suspect]
     Indication: HYPERURICAEMIA
     Dosage: (100 MG BID ORAL)
     Route: 048
     Dates: start: 20090101
  5. KALLIDINOGENASE (CARNACULIN) 50 IU [Suspect]
     Indication: GLAUCOMA
     Dosage: (50 IU TID ORAL)
     Route: 048
     Dates: start: 20090101

REACTIONS (1)
  - DIVERTICULITIS INTESTINAL HAEMORRHAGIC [None]
